FAERS Safety Report 7583053-1 (Version None)
Quarter: 2011Q2

REPORT INFORMATION
  Report Type: 
  Country: None (occurrence: None)
  Receive Date: 20110630
  Receipt Date: 20110622
  Transmission Date: 20111010
  Serious: Yes (Other)
  Sender: FDA-Public Use
  Company Number: US-JNJFOC-20110610640

PATIENT
  Sex: Female
  Weight: 83.92 kg

DRUGS (5)
  1. RISPERDAL [Suspect]
     Indication: SCHIZOAFFECTIVE DISORDER
     Route: 048
     Dates: start: 20000101, end: 20100101
  2. VICODIN [Concomitant]
     Indication: PAIN
     Route: 048
  3. ALBUTEROL INHALERS [Concomitant]
     Indication: PRODUCT USED FOR UNKNOWN INDICATION
     Route: 048
  4. PHENERGAN HCL [Concomitant]
     Indication: COUGH
     Route: 048
  5. RISPERDAL [Suspect]
     Indication: BIPOLAR DISORDER
     Route: 048
     Dates: start: 20000101, end: 20100101

REACTIONS (2)
  - HEPATITIS C [None]
  - HYPERTENSION [None]
